FAERS Safety Report 9691507 (Version 1)
Quarter: 2013Q4

REPORT INFORMATION
  Report Type: Spontaneous
  Country: US (occurrence: US)
  Receive Date: 20131115
  Receipt Date: 20131115
  Transmission Date: 20140711
  Serious: Yes (Other)
  Sender: FDA-Public Use
  Company Number: US-ELI_LILLY_AND_COMPANY-US201311001834

PATIENT
  Age: 75 Year
  Sex: Female

DRUGS (6)
  1. HUMULIN 30% REGULAR, 70% NPH [Suspect]
     Indication: DIABETES MELLITUS
     Dosage: 59 U, PRN
     Route: 065
     Dates: start: 1972
  2. HUMULIN 30% REGULAR, 70% NPH [Suspect]
     Dosage: 59 U, PRN
     Route: 065
     Dates: start: 1972
  3. HUMULIN 30% REGULAR, 70% NPH [Suspect]
     Dosage: 59 U, PRN
     Route: 065
     Dates: start: 1972
  4. HUMULIN 30% REGULAR, 70% NPH [Suspect]
     Dosage: 59 U, PRN
     Route: 065
     Dates: start: 1972
  5. HUMULIN 30% REGULAR, 70% NPH [Suspect]
     Dosage: 59 U, PRN
     Route: 065
     Dates: start: 1972
  6. HUMULIN 30% REGULAR, 70% NPH [Suspect]
     Dosage: 59 U, PRN
     Route: 065
     Dates: start: 1972

REACTIONS (9)
  - Breast cancer [Unknown]
  - Blindness unilateral [Unknown]
  - Deafness unilateral [Unknown]
  - Alopecia [Unknown]
  - Blood pressure increased [Unknown]
  - Amnesia [Unknown]
  - Disorientation [Unknown]
  - Wound [Unknown]
  - Drug dose omission [Unknown]
